FAERS Safety Report 7198421-X (Version None)
Quarter: 2010Q4

REPORT INFORMATION
  Report Type: 
  Country: None (occurrence: None)
  Receive Date: 20101227
  Receipt Date: 20101215
  Transmission Date: 20110411
  Serious: Yes (Other)
  Sender: FDA-Public Use
  Company Number: PHHY2010JP85777

PATIENT
  Age: 5 Year
  Sex: Female

DRUGS (4)
  1. CYCLOSPORINE [Suspect]
     Indication: BEHCET'S SYNDROME
     Dosage: 4 MG/KG
     Route: 048
  2. PREDNISOLONE [Concomitant]
     Indication: BEHCET'S SYNDROME
     Dosage: 1 MG/KG
     Route: 048
  3. COLCHICINE [Concomitant]
     Indication: BEHCET'S SYNDROME
     Route: 048
  4. METHYLPREDNISOLONE ACETATE [Concomitant]
     Indication: BEHCET'S SYNDROME
     Dosage: 30 MG/KG
     Route: 042

REACTIONS (3)
  - EPSTEIN-BARR VIRUS INFECTION [None]
  - HISTIOCYTOSIS HAEMATOPHAGIC [None]
  - LYMPHOHISTIOCYTOSIS [None]
